FAERS Safety Report 8391939-3 (Version None)
Quarter: 2012Q2

REPORT INFORMATION
  Report Type: 
  Country: None (occurrence: None)
  Receive Date: 20120529
  Receipt Date: 20120518
  Transmission Date: 20120825
  Serious: Yes (Life-Threatening)
  Sender: FDA-Public Use
  Company Number: RU-VIIV HEALTHCARE LIMITED-B0803377A

PATIENT
  Sex: Male
  Weight: 75 kg

DRUGS (4)
  1. ABACAVIR [Suspect]
     Indication: HIV INFECTION
     Dosage: 600MG PER DAY
     Route: 048
     Dates: start: 20120505, end: 20120509
  2. RITONAVIR [Concomitant]
     Indication: HIV INFECTION
     Dosage: 100MG PER DAY
     Route: 048
  3. EPIVIR [Concomitant]
     Indication: HIV INFECTION
     Dosage: 300MG PER DAY
     Route: 048
  4. DARUNAVIR HYDRATE [Concomitant]
     Indication: HIV INFECTION
     Dosage: 800MG PER DAY
     Route: 048

REACTIONS (5)
  - RASH [None]
  - OROPHARYNGEAL PAIN [None]
  - COUGH [None]
  - PYREXIA [None]
  - DYSPNOEA [None]
